FAERS Safety Report 8524927-4 (Version None)
Quarter: 2012Q3

REPORT INFORMATION
  Report Type: 
  Country: None (occurrence: None)
  Receive Date: 20120720
  Receipt Date: 20120709
  Transmission Date: 20120928
  Serious: No
  Sender: FDA-Public Use
  Company Number: US-009507513-1206USA01311

PATIENT

DRUGS (2)
  1. HYDROCORTONE [Suspect]
     Indication: HYPOTENSION
     Dosage: FOLLOWED BY TAPERING DAILY DOSES
     Route: 048
  2. DECADRON [Suspect]
     Indication: HYPOTENSION
     Dosage: FOLLOWED BY TAPERING DAILY DOSES
     Route: 048

REACTIONS (1)
  - NERVOUS SYSTEM DISORDER [None]
